FAERS Safety Report 4357047-3 (Version None)
Quarter: 2004Q2

REPORT INFORMATION
  Report Type: 
  Country: None (occurrence: None)
  Receive Date: 20040512
  Receipt Date: 20040430
  Transmission Date: 20050107
  Serious: Yes (Death)
  Sender: FDA-Public Use
  Company Number: GB-GLAXOSMITHKLINE-B0331653A

PATIENT
  Age: 76 Year
  Sex: Female
  Weight: 62 kg

DRUGS (8)
  1. ROSIGLITAZONE MALEATE [Suspect]
     Dosage: 4MG PER DAY
     Route: 048
     Dates: start: 20040310, end: 20040407
  2. PERINDOPRIL [Suspect]
     Route: 048
     Dates: end: 20040407
  3. ATORVASTATIN CALCIUM [Concomitant]
     Dosage: 10MG PER DAY
     Route: 048
  4. METFORMIN HCL [Concomitant]
     Dosage: 1G PER DAY
     Route: 048
  5. LANSOPRAZOLE [Concomitant]
     Dosage: 30MG PER DAY
     Route: 065
  6. FUROSEMIDE [Concomitant]
     Dosage: 80MG PER DAY
     Route: 065
  7. FERROUS SULFATE TAB [Concomitant]
     Dosage: 200MG PER DAY
     Route: 065
  8. BRICANYL [Concomitant]

REACTIONS (1)
  - RENAL FAILURE [None]
